FAERS Safety Report 15482541 (Version 1)
Quarter: 2018Q4

REPORT INFORMATION
  Report Type: Spontaneous
  Country: US (occurrence: US)
  Receive Date: 20181010
  Receipt Date: 20181010
  Transmission Date: 20190205
  Serious: No
  Sender: FDA-Public Use
  Company Number: US-SA-2018SA277568

PATIENT
  Age: 32 Year
  Sex: Male
  Weight: 93 kg

DRUGS (1)
  1. FABRAZYME [Suspect]
     Active Substance: AGALSIDASE BETA
     Dosage: 35 MG, QOW (93MG/93KGS)
     Route: 041

REACTIONS (1)
  - Globotriaosylceramide increased [Unknown]

NARRATIVE: CASE EVENT DATE: 201804
